FAERS Safety Report 6061981-6 (Version None)
Quarter: 2009Q1

REPORT INFORMATION
  Report Type: 
  Country: None (occurrence: None)
  Receive Date: 20090202
  Receipt Date: 20090130
  Transmission Date: 20090719
  Serious: Yes (Death, Life-Threatening, Other)
  Sender: FDA-Public Use
  Company Number: US-ROXANE LABORATORIES, INC.-2008-BP-12201RO

PATIENT
  Sex: Male

DRUGS (3)
  1. SODIUM POLYSTYRENE SULFONATE [Suspect]
     Indication: BLOOD POTASSIUM INCREASED
     Route: 048
     Dates: start: 20080709, end: 20080709
  2. SODIUM POLYSTYRENE SULFONATE [Suspect]
     Dates: start: 20080709, end: 20080709
  3. STEROID [Concomitant]

REACTIONS (5)
  - CANDIDIASIS [None]
  - DEATH [None]
  - FUNGAL INFECTION [None]
  - GENERAL PHYSICAL HEALTH DETERIORATION [None]
  - SEPSIS [None]
